FAERS Safety Report 23488880 (Version 1)
Quarter: 2024Q1

REPORT INFORMATION
  Report Type: Spontaneous
  Country: US (occurrence: US)
  Receive Date: 20240206
  Receipt Date: 20240206
  Transmission Date: 20240410
  Serious: No
  Sender: FDA-Public Use
  Company Number: US-PFIZER INC-202400032761

PATIENT
  Age: 80 Year
  Sex: Male

DRUGS (2)
  1. BRAFTOVI [Suspect]
     Active Substance: ENCORAFENIB
     Dosage: 6 DF
     Dates: start: 202401
  2. MEKTOVI [Suspect]
     Active Substance: BINIMETINIB
     Dosage: 3 OF THE BINIMETINIB AND THEN 12 HOURS LATER, THE 3 BINIMETINIB AGAIN
     Dates: start: 202401

REACTIONS (2)
  - Vision blurred [Unknown]
  - Benign prostatic hyperplasia [Unknown]
